FAERS Safety Report 5447528-3 (Version None)
Quarter: 2007Q3

REPORT INFORMATION
  Report Type: 
  Country: None (occurrence: None)
  Receive Date: 20070910
  Receipt Date: 20070905
  Transmission Date: 20080115
  Serious: Yes (Hospitalization, Other)
  Sender: FDA-Public Use
  Company Number: B0486184A

PATIENT
  Age: 4 Year
  Sex: Male

DRUGS (2)
  1. SERETIDE DISKUS [Suspect]
     Indication: ASTHMA
     Route: 055
     Dates: start: 20050901, end: 20060901
  2. SINGULAIR [Suspect]
     Indication: ASTHMA
     Dates: start: 20041101, end: 20070301

REACTIONS (19)
  - ABNORMAL BEHAVIOUR [None]
  - ADRENAL INSUFFICIENCY [None]
  - AGGRESSION [None]
  - ANXIETY [None]
  - APATHY [None]
  - COLD SWEAT [None]
  - CONFUSIONAL STATE [None]
  - DEPRESSED LEVEL OF CONSCIOUSNESS [None]
  - DEPRESSED MOOD [None]
  - DEPRESSION [None]
  - FATIGUE [None]
  - FEELING COLD [None]
  - HEADACHE [None]
  - HYPERSOMNIA [None]
  - HYPOGLYCAEMIA [None]
  - MIDDLE INSOMNIA [None]
  - SLEEP TALKING [None]
  - SUICIDAL IDEATION [None]
  - UNRESPONSIVE TO STIMULI [None]
